FAERS Safety Report 10412993 (Version 1)
Quarter: 2014Q3

REPORT INFORMATION
  Report Type: Spontaneous
  Country: US (occurrence: None)
  Receive Date: 20140826
  Receipt Date: 20140826
  Transmission Date: 20150326
  Serious: No
  Sender: FDA-Public Use
  Company Number: None

PATIENT
  Age: 19 Year
  Sex: Female
  Weight: 72.12 kg

DRUGS (1)
  1. NEXPLANON [Suspect]
     Active Substance: ETONOGESTREL

REACTIONS (9)
  - Menorrhagia [None]
  - Insomnia [None]
  - Migraine [None]
  - Partner stress [None]
  - Fatigue [None]
  - Depressed mood [None]
  - Asthenia [None]
  - Balance disorder [None]
  - Mood swings [None]

NARRATIVE: CASE EVENT DATE: 20131101
